FAERS Safety Report 5370102-4 (Version None)
Quarter: 2007Q2

REPORT INFORMATION
  Report Type: 
  Country: None (occurrence: None)
  Receive Date: 20070626
  Receipt Date: 20070619
  Transmission Date: 20071010
  Serious: Yes (Hospitalization)
  Sender: FDA-Public Use
  Company Number: US-JNJFOC-20070305728

PATIENT
  Sex: Female
  Weight: 106.14 kg

DRUGS (11)
  1. ORTHO EVRA [Suspect]
     Indication: CONTRACEPTION
     Route: 062
  2. CELEXA [Concomitant]
     Indication: DRUG USE FOR UNKNOWN INDICATION
  3. ZANTAC [Concomitant]
     Indication: DRUG USE FOR UNKNOWN INDICATION
  4. MIDODRINE [Concomitant]
     Indication: POSTURAL ORTHOSTATIC TACHYCARDIA SYNDROME
  5. INDERAL [Concomitant]
     Indication: POSTURAL ORTHOSTATIC TACHYCARDIA SYNDROME
  6. FLORINEF [Concomitant]
     Indication: POSTURAL ORTHOSTATIC TACHYCARDIA SYNDROME
  7. CLARITIN [Concomitant]
     Indication: DRUG USE FOR UNKNOWN INDICATION
  8. ASPIRIN [Concomitant]
     Indication: DRUG USE FOR UNKNOWN INDICATION
  9. BENEDRYL [Concomitant]
     Indication: DRUG USE FOR UNKNOWN INDICATION
  10. DILAUDID [Concomitant]
     Indication: PAIN
  11. DILAUDID [Concomitant]

REACTIONS (20)
  - ANXIETY [None]
  - AXILLARY VEIN THROMBOSIS [None]
  - CATHETER RELATED COMPLICATION [None]
  - CHEST PAIN [None]
  - CHRONIC SINUSITIS [None]
  - DEEP VEIN THROMBOSIS [None]
  - DERMATITIS [None]
  - DEVICE BREAKAGE [None]
  - DRUG WITHDRAWAL SYNDROME [None]
  - FEELING JITTERY [None]
  - HEADACHE [None]
  - HYPERHIDROSIS [None]
  - MIGRAINE [None]
  - NAUSEA [None]
  - PAIN IN EXTREMITY [None]
  - RESPIRATORY DISTRESS [None]
  - SEASONAL ALLERGY [None]
  - SUBCLAVIAN VEIN THROMBOSIS [None]
  - VOMITING [None]
  - WEIGHT INCREASED [None]
